FAERS Safety Report 11687598 (Version 13)
Quarter: 2020Q3

REPORT INFORMATION
  Report Type: Spontaneous
  Country: US (occurrence: US)
  Receive Date: 20151030
  Receipt Date: 20200904
  Transmission Date: 20201102
  Serious: Yes (Congenital Anomaly, Other)
  Sender: FDA-Public Use
  Company Number: PHEH2015US022080

PATIENT
  Sex: Male

DRUGS (2)
  1. ZOFRAN [Suspect]
     Active Substance: ONDANSETRON HYDROCHLORIDE
     Indication: FOETAL EXPOSURE DURING PREGNANCY
     Dosage: UNK
     Route: 064
  2. ONDANSETRON. [Suspect]
     Active Substance: ONDANSETRON
     Indication: FOETAL EXPOSURE DURING PREGNANCY
     Dosage: MOTHER DOSE: 08 MG, PRN
     Route: 064

REACTIONS (44)
  - Multiple congenital abnormalities [Unknown]
  - Cellulitis [Unknown]
  - Pain [Unknown]
  - Anhedonia [Unknown]
  - Cough [Unknown]
  - Otorrhoea [Unknown]
  - Rhinitis allergic [Unknown]
  - Cardiac murmur [Unknown]
  - Atrial septal defect [Unknown]
  - Emotional distress [Unknown]
  - Attention deficit hyperactivity disorder [Unknown]
  - Bronchitis [Unknown]
  - Cardiac septal defect [Unknown]
  - Irregular breathing [Unknown]
  - Injury [Unknown]
  - Tonsillitis [Unknown]
  - Fatigue [Unknown]
  - Tooth abscess [Unknown]
  - Costochondritis [Unknown]
  - Dermatitis atopic [Unknown]
  - Alexia [Unknown]
  - Gastrooesophageal reflux disease [Unknown]
  - Nasal congestion [Unknown]
  - Febrile convulsion [Unknown]
  - Reading disorder [Unknown]
  - Influenza [Unknown]
  - Molluscum contagiosum [Unknown]
  - Otitis media chronic [Unknown]
  - Croup infectious [Unknown]
  - Dyslexia [Unknown]
  - Lymphadenitis [Unknown]
  - Psychomotor hyperactivity [Unknown]
  - Pharyngitis [Unknown]
  - Anxiety [Unknown]
  - Decreased appetite [Unknown]
  - Pyrexia [Unknown]
  - Pharyngitis streptococcal [Unknown]
  - Abdominal pain [Unknown]
  - Heart disease congenital [Unknown]
  - Foetal exposure during pregnancy [Unknown]
  - Ear pain [Unknown]
  - Constipation [Unknown]
  - Upper respiratory tract infection [Unknown]
  - Dental caries [Unknown]
